FAERS Safety Report 7365460-5 (Version None)
Quarter: 2011Q1

REPORT INFORMATION
  Report Type: 
  Country: None (occurrence: None)
  Receive Date: 20110316
  Receipt Date: 20110316
  Transmission Date: 20110831
  Serious: No
  Sender: FDA-Public Use
  Company Number: None

PATIENT
  Age: 79 Year
  Sex: Male
  Weight: 64.4108 kg

DRUGS (2)
  1. TOPROL-XL [Suspect]
  2. METOPROLOL SUCCINATE EXTENDED RELEASE [Suspect]
     Indication: CORONARY ARTERY DISEASE
     Dosage: 50MG 1 DAILY ORAL
     Route: 048
     Dates: start: 20101201, end: 20110111

REACTIONS (6)
  - HYPERAESTHESIA [None]
  - PERIPHERAL COLDNESS [None]
  - PRODUCT SUBSTITUTION ISSUE [None]
  - BLOOD PRESSURE INCREASED [None]
  - HYPERSENSITIVITY [None]
  - PRURITUS [None]
